FAERS Safety Report 20536310 (Version 1)
Quarter: 2022Q1

REPORT INFORMATION
  Report Type: Spontaneous
  Country: FR (occurrence: FR)
  Receive Date: 20220302
  Receipt Date: 20220302
  Transmission Date: 20220423
  Serious: Yes (Hospitalization)
  Sender: FDA-Public Use
  Company Number: None

PATIENT
  Age: 11 Year
  Sex: Female
  Weight: 47 kg

DRUGS (1)
  1. TRAMADOL HYDROCHLORIDE [Suspect]
     Active Substance: TRAMADOL HYDROCHLORIDE
     Indication: Headache
     Dosage: 25 MILLIGRAM
     Route: 048
     Dates: start: 20210925, end: 20210925

REACTIONS (4)
  - Delirium [Recovered/Resolved]
  - Dysarthria [Recovered/Resolved]
  - Euphoric mood [Recovered/Resolved]
  - Vision blurred [Recovered/Resolved]

NARRATIVE: CASE EVENT DATE: 20210925
